FAERS Safety Report 17593586 (Version 1)
Quarter: 2020Q1

REPORT INFORMATION
  Report Type: Spontaneous
  Country: CN (occurrence: CN)
  Receive Date: 20200327
  Receipt Date: 20200327
  Transmission Date: 20200409
  Serious: Yes (Other)
  Sender: FDA-Public Use
  Company Number: CN-BRISTOL-MYERS SQUIBB COMPANY-BMS-2020-025931

PATIENT
  Age: 71 Year
  Sex: Female

DRUGS (1)
  1. DASATINIB. [Suspect]
     Active Substance: DASATINIB
     Indication: GALLBLADDER CANCER
     Dosage: 140 MILLIGRAM, QD
     Route: 065

REACTIONS (2)
  - Intentional product use issue [Unknown]
  - Neurotoxicity [Unknown]
